FAERS Safety Report 14546434 (Version 1)
Quarter: 2018Q1

REPORT INFORMATION
  Report Type: Spontaneous
  Country: DE (occurrence: DE)
  Receive Date: 20180219
  Receipt Date: 20180219
  Transmission Date: 20180509
  Serious: Yes (Other)
  Sender: FDA-Public Use
  Company Number: DE-ROCHE-2069889

PATIENT
  Age: 48 Year
  Sex: Male

DRUGS (1)
  1. TAMIFLU [Suspect]
     Active Substance: OSELTAMIVIR PHOSPHATE
     Indication: INFLUENZA
     Route: 048
     Dates: start: 20180130

REACTIONS (7)
  - Panic attack [Unknown]
  - Hyperhidrosis [Unknown]
  - Sleep disorder [Unknown]
  - Diarrhoea [Unknown]
  - Pneumonia [Unknown]
  - Fear [Unknown]
  - Pyrexia [Unknown]
